FAERS Safety Report 24606638 (Version 1)
Quarter: 2024Q4

REPORT INFORMATION
  Report Type: Spontaneous
  Country: ES (occurrence: A1)
  Receive Date: 20241112
  Receipt Date: 20241112
  Transmission Date: 20250115
  Serious: Yes (Life-Threatening, Hospitalization, Disabling, Other)
  Sender: BRECKENRIDGE PHARMACEUTICAL, INC.
  Company Number: RCT-1268742

PATIENT
  Sex: Female

DRUGS (2)
  1. OMEPRAZOLE [Suspect]
     Active Substance: OMEPRAZOLE
  2. RANITIDINE [Concomitant]
     Active Substance: RANITIDINE

REACTIONS (17)
  - Anal incontinence [Recovering/Resolving]
  - Skin atrophy [Recovering/Resolving]
  - Endometrial cancer [Unknown]
  - Foot deformity [Unknown]
  - Withdrawal syndrome [Unknown]
  - Magnesium deficiency [Recovering/Resolving]
  - Macrocytosis [Recovering/Resolving]
  - Hypoaesthesia oral [Unknown]
  - Haemorrhage [Recovering/Resolving]
  - Skin exfoliation [Recovering/Resolving]
  - Cyanosis [Recovering/Resolving]
  - Peripheral swelling [Recovering/Resolving]
  - Gait disturbance [Recovering/Resolving]
  - Urinary tract infection [Recovering/Resolving]
  - Hiatus hernia [Recovering/Resolving]
  - Axillary mass [Recovering/Resolving]
  - Dysstasia [Recovering/Resolving]
